FAERS Safety Report 12190771 (Version 3)
Quarter: 2016Q2

REPORT INFORMATION
  Report Type: Report from Study
  Country: US (occurrence: US)
  Receive Date: 20160318
  Receipt Date: 20160421
  Transmission Date: 20160815
  Serious: Yes (Hospitalization)
  Sender: FDA-Public Use
  Company Number: US-JNJFOC-20160309060

PATIENT
  Sex: Female
  Weight: 54.43 kg

DRUGS (10)
  1. PREDNISONE. [Suspect]
     Active Substance: PREDNISONE
     Indication: PLASMA CELL MYELOMA
     Dates: start: 201602, end: 2016
  2. DARZALEX [Suspect]
     Active Substance: DARATUMUMAB
     Indication: PLASMA CELL MYELOMA
     Route: 042
     Dates: start: 2015, end: 2015
  3. PURINETHOL [Suspect]
     Active Substance: MERCAPTOPURINE
     Indication: PLASMA CELL MYELOMA
     Dates: start: 201603, end: 20160304
  4. DARZALEX [Suspect]
     Active Substance: DARATUMUMAB
     Indication: PLASMA CELL MYELOMA
     Route: 042
     Dates: start: 2015
  5. PURINETHOL [Suspect]
     Active Substance: MERCAPTOPURINE
     Indication: PLASMA CELL MYELOMA
     Dates: start: 201602, end: 2016
  6. ONCOVIN [Suspect]
     Active Substance: VINCRISTINE SULFATE
     Indication: PLASMA CELL MYELOMA
     Dates: start: 201602, end: 2016
  7. METHOTREXATE [Suspect]
     Active Substance: METHOTREXATE
     Indication: PLASMA CELL MYELOMA
     Dates: start: 201603, end: 20160304
  8. PREDNISONE. [Suspect]
     Active Substance: PREDNISONE
     Indication: PLASMA CELL MYELOMA
     Dates: start: 201603, end: 20160304
  9. ONCOVIN [Suspect]
     Active Substance: VINCRISTINE SULFATE
     Indication: PLASMA CELL MYELOMA
     Dates: start: 201603, end: 20160304
  10. METHOTREXATE [Suspect]
     Active Substance: METHOTREXATE
     Indication: PLASMA CELL MYELOMA
     Dates: start: 201602, end: 2016

REACTIONS (14)
  - Anaemia [Recovered/Resolved]
  - Therapeutic response decreased [Not Recovered/Not Resolved]
  - Adverse event [Unknown]
  - Ocular neoplasm [Unknown]
  - Adverse event [Unknown]
  - Adverse event [Unknown]
  - Brain neoplasm [Unknown]
  - Spinal cord neoplasm [Unknown]
  - Pneumonia [Unknown]
  - Abasia [Recovered/Resolved]
  - Urinary tract infection [Recovered/Resolved]
  - Asthenia [Recovered/Resolved]
  - Dehydration [Recovered/Resolved]
  - Diarrhoea [Recovered/Resolved]

NARRATIVE: CASE EVENT DATE: 2016
